FAERS Safety Report 20643616 (Version 1)
Quarter: 2022Q1

REPORT INFORMATION
  Report Type: Spontaneous
  Country: NL (occurrence: NL)
  Receive Date: 20220328
  Receipt Date: 20220328
  Transmission Date: 20220423
  Serious: Yes (Other)
  Sender: FDA-Public Use
  Company Number: None

PATIENT
  Age: 49 Year
  Sex: Female
  Weight: 75 kg

DRUGS (2)
  1. ZOLPIDEM [Suspect]
     Active Substance: ZOLPIDEM TARTRATE
     Indication: Sleep disorder
     Dosage: 7.5 MILLIGRAM (7.5 MG)
     Dates: start: 20220304, end: 20220305
  2. ANASTROZOLE [Concomitant]
     Active Substance: ANASTROZOLE
     Dosage: 1 MILLIGRAM (TABLET, 1 MG (MILLIGRAM))

REACTIONS (5)
  - Drug abuse [Recovered/Resolved]
  - Patient elopement [Recovered/Resolved]
  - Increased appetite [Recovered/Resolved]
  - Aggression [Recovered/Resolved]
  - Somnambulism [Recovered/Resolved]

NARRATIVE: CASE EVENT DATE: 20220304
